FAERS Safety Report 19799689 (Version 1)
Quarter: 2021Q3

REPORT INFORMATION
  Report Type: Other
  Country: AR (occurrence: AR)
  Receive Date: 20210907
  Receipt Date: 20210907
  Transmission Date: 20211014
  Serious: Yes (Other)
  Sender: FDA-Public Use
  Company Number: AR-ROCHE-2894954

PATIENT
  Age: 9 Year
  Sex: Male

DRUGS (5)
  1. XOLAIR [Suspect]
     Active Substance: OMALIZUMAB
     Dosage: 300 MG, QMO (SOLUTION)
     Route: 058
  2. XOLAIR [Suspect]
     Active Substance: OMALIZUMAB
     Indication: ASTHMA
     Dosage: 300 MG, QMO (SOLUTION)
     Route: 058
     Dates: start: 20190311, end: 20210407
  3. XOLAIR [Suspect]
     Active Substance: OMALIZUMAB
     Dosage: 300 MG, QMO (SOLUTION)
     Route: 058
     Dates: start: 20210414
  4. BUDESONIDE. [Concomitant]
     Active Substance: BUDESONIDE
     Indication: PRODUCT USED FOR UNKNOWN INDICATION
     Dosage: 4 DF, QD
     Route: 055
  5. MONTELUKAST [Concomitant]
     Active Substance: MONTELUKAST SODIUM
     Indication: PRODUCT USED FOR UNKNOWN INDICATION
     Dosage: 5 MG, QD
     Route: 065

REACTIONS (5)
  - Bronchospasm [Unknown]
  - Tachycardia [Recovered/Resolved]
  - Asthmatic crisis [Recovered/Resolved]
  - Asthmatic crisis [Unknown]
  - Wheezing [Unknown]

NARRATIVE: CASE EVENT DATE: 20210405
